FAERS Safety Report 13706243 (Version 2)
Quarter: 2017Q3

REPORT INFORMATION
  Report Type: Spontaneous
  Country: US (occurrence: US)
  Receive Date: 20170630
  Receipt Date: 20170804
  Transmission Date: 20171127
  Serious: No
  Sender: FDA-Public Use
  Company Number: US-PFIZER INC-2017281205

PATIENT
  Age: 63 Year
  Sex: Male
  Weight: 106 kg

DRUGS (10)
  1. AMLODIPINE [Concomitant]
     Active Substance: AMLODIPINE BESYLATE
     Dosage: UNK
  2. PROSCAR [Concomitant]
     Active Substance: FINASTERIDE
     Dosage: UNK
  3. MIRALAX [Concomitant]
     Active Substance: POLYETHYLENE GLYCOL 3350
     Dosage: UNK
  4. HYDROCHLOROTHIAZIDE. [Concomitant]
     Active Substance: HYDROCHLOROTHIAZIDE
     Dosage: UNK
  5. ZYRTEC [Concomitant]
     Active Substance: CETIRIZINE HYDROCHLORIDE
     Dosage: UNK
  6. SUTENT [Suspect]
     Active Substance: SUNITINIB MALATE
     Indication: METASTATIC RENAL CELL CARCINOMA
     Dosage: 50 MG, CYCLIC, (DAILY, 28 DAYS ON / 14 DAYS OFF)
     Route: 048
     Dates: start: 20170607
  7. PRILOSEC [Concomitant]
     Active Substance: OMEPRAZOLE MAGNESIUM
     Dosage: UNK
  8. COZAAR [Concomitant]
     Active Substance: LOSARTAN POTASSIUM
     Dosage: UNK
  9. ALLERGY NASAL DECONGESTANT [Concomitant]
     Dosage: UNK
  10. COLACE [Concomitant]
     Active Substance: DOCUSATE SODIUM
     Dosage: UNK

REACTIONS (9)
  - Constipation [Unknown]
  - Diarrhoea [Unknown]
  - Dry skin [Unknown]
  - Cough [Unknown]
  - Abdominal distension [Recovered/Resolved]
  - Onychomycosis [Recovered/Resolved]
  - Blister [Unknown]
  - Abdominal discomfort [Recovered/Resolved]
  - Skin exfoliation [Unknown]

NARRATIVE: CASE EVENT DATE: 20170622
